FAERS Safety Report 22532669 (Version 1)
Quarter: 2023Q2

REPORT INFORMATION
  Report Type: Spontaneous
  Country: CA (occurrence: CA)
  Receive Date: 20230607
  Receipt Date: 20230607
  Transmission Date: 20230721
  Serious: Yes (Other)
  Sender: FDA-Public Use
  Company Number: CA-ASPEN-GLO2020CA004129

PATIENT
  Age: 31 Year
  Sex: Female

DRUGS (18)
  1. DIAZEPAM [Suspect]
     Active Substance: DIAZEPAM
     Indication: Status epilepticus
     Dosage: UNK
     Route: 065
  2. DIAZEPAM [Suspect]
     Active Substance: DIAZEPAM
     Dosage: 10 MG
     Route: 065
  3. LORAZEPAM [Suspect]
     Active Substance: LORAZEPAM
     Indication: Status epilepticus
     Dosage: 2 MG
     Route: 065
  4. MAGNESIUM SULFATE [Suspect]
     Active Substance: MAGNESIUM SULFATE
     Indication: Status epilepticus
     Dosage: UNK
     Route: 065
  5. METOCLOPRAMIDE [Suspect]
     Active Substance: METOCLOPRAMIDE
     Indication: Prophylaxis
     Dosage: 10 MG
     Route: 042
  6. PHENYTOIN [Suspect]
     Active Substance: PHENYTOIN
     Indication: Status epilepticus
     Dosage: 1 G
     Route: 065
  7. DIPRIVAN [Suspect]
     Active Substance: PROPOFOL
     Indication: Status epilepticus
     Dosage: UNK
     Route: 042
  8. DIPRIVAN [Suspect]
     Active Substance: PROPOFOL
     Dosage: 200 MG, 1 DOSE HOURLY
     Route: 042
  9. MIDAZOLAM HYDROCHLORIDE [Suspect]
     Active Substance: MIDAZOLAM HYDROCHLORIDE
     Indication: Product used for unknown indication
     Dosage: 3 MG
     Route: 065
  10. PAROXETINE [Suspect]
     Active Substance: PAROXETINE
     Indication: Bipolar disorder
     Dosage: UNK
     Route: 065
  11. ATIVAN [Suspect]
     Active Substance: LORAZEPAM
     Indication: Bipolar disorder
     Dosage: UNK
     Route: 065
  12. DEXTROSE [Suspect]
     Active Substance: DEXTROSE\DEXTROSE MONOHYDRATE
     Indication: Product used for unknown indication
     Dosage: 50 ML
     Route: 042
  13. SODIUM CITRATE [Suspect]
     Active Substance: SODIUM CITRATE
     Indication: Prophylaxis
     Dosage: 30 ML
     Route: 048
  14. SUCCINYLCHOLINE CHLORIDE [Suspect]
     Active Substance: SUCCINYLCHOLINE CHLORIDE
     Indication: Endotracheal intubation
     Dosage: 100 MG
     Route: 042
  15. THIOPENTAL [Suspect]
     Active Substance: THIOPENTAL
     Indication: Status epilepticus
     Dosage: UNK
     Route: 042
  16. THIOPENTAL [Suspect]
     Active Substance: THIOPENTAL
     Indication: Endotracheal intubation
     Dosage: 100 MG
     Route: 042
  17. THIOPENTAL [Suspect]
     Active Substance: THIOPENTAL
     Dosage: 250 MG
     Route: 042
  18. THIOPENTAL [Suspect]
     Active Substance: THIOPENTAL
     Dosage: 300 MG, 1 DOSE HOURLY
     Route: 042

REACTIONS (7)
  - Diabetes insipidus [Not Recovered/Not Resolved]
  - Foetal death [Not Recovered/Not Resolved]
  - Left ventricular dysfunction [Not Recovered/Not Resolved]
  - Renal impairment [Not Recovered/Not Resolved]
  - Hypotension [Not Recovered/Not Resolved]
  - Maternal exposure during pregnancy [Unknown]
  - Off label use [Unknown]
